FAERS Safety Report 9462633 (Version 1)
Quarter: 2013Q3

REPORT INFORMATION
  Report Type: Spontaneous
  Country: FR (occurrence: FR)
  Receive Date: 20130816
  Receipt Date: 20130816
  Transmission Date: 20140515
  Serious: Yes (Hospitalization)
  Sender: FDA-Public Use
  Company Number: FR-ELI_LILLY_AND_COMPANY-FR201308003629

PATIENT
  Age: 53 Year
  Sex: Female

DRUGS (4)
  1. GEMZAR [Suspect]
     Indication: CHOLANGIOCARCINOMA
     Dosage: 1900 MG, UNK
     Route: 013
     Dates: start: 20130607, end: 20130607
  2. GEMZAR [Suspect]
     Dosage: 1900 MG, UNK
     Route: 013
     Dates: start: 20130620
  3. OXALIPLATIN TEVA [Suspect]
     Indication: CHOLANGIOCARCINOMA
     Dosage: 190 MG, UNK
     Route: 013
     Dates: start: 20130607, end: 20130607
  4. NIFLUGEL [Suspect]
     Dosage: 3 DF, QD
     Dates: start: 20130620

REACTIONS (5)
  - Infusion site extravasation [Recovered/Resolved]
  - Injection site cellulitis [Recovered/Resolved]
  - Fistula [Recovered/Resolved]
  - Pseudomonas infection [Recovered/Resolved]
  - Off label use [Unknown]
